FAERS Safety Report 4537463-7 (Version None)
Quarter: 2004Q4

REPORT INFORMATION
  Report Type: 
  Country: None (occurrence: None)
  Receive Date: 20041216
  Receipt Date: 20040420
  Transmission Date: 20050328
  Serious: Yes (Other)
  Sender: FDA-Public Use
  Company Number: HQWYE553421APR04

PATIENT
  Age: 36 Year
  Sex: Male
  Weight: 113.5 kg

DRUGS (2)
  1. EFFEXOR XR [Suspect]
     Indication: DEPRESSION
     Dosage: SEE IMAGE
     Route: 048
     Dates: start: 20031124, end: 20040419
  2. EFFEXOR XR [Suspect]
     Indication: DEPRESSION
     Dosage: SEE IMAGE
     Route: 048
     Dates: start: 20040420

REACTIONS (14)
  - ABDOMINAL DISTENSION [None]
  - ABDOMINAL PAIN [None]
  - ARTHRALGIA [None]
  - COSTOCHONDRITIS [None]
  - EYELID OEDEMA [None]
  - FLANK PAIN [None]
  - GASTROENTERITIS [None]
  - HEADACHE [None]
  - MIDDLE EAR EFFUSION [None]
  - NASOPHARYNGITIS [None]
  - PANCREATITIS [None]
  - PHOTOSENSITIVITY REACTION [None]
  - RESPIRATORY TRACT INFECTION [None]
  - URINARY TRACT INFECTION [None]
